FAERS Safety Report 7401992-9 (Version None)
Quarter: 2011Q2

REPORT INFORMATION
  Report Type: 
  Country: None (occurrence: None)
  Receive Date: 20110408
  Receipt Date: 20110405
  Transmission Date: 20111010
  Serious: Yes (Other)
  Sender: FDA-Public Use
  Company Number: US-PFIZER INC-2011057195

PATIENT
  Sex: Female
  Weight: 47.61 kg

DRUGS (4)
  1. NICOTROL [Suspect]
     Indication: SMOKING CESSATION THERAPY
     Dosage: 10 MG, AS NEEDED
     Route: 055
     Dates: start: 20050101
  2. NICOTROL [Suspect]
     Dosage: UNK
  3. OXYGEN [Concomitant]
     Dosage: UNK
  4. ALBUTEROL [Concomitant]
     Dosage: UNK

REACTIONS (1)
  - OBSTRUCTIVE AIRWAYS DISORDER [None]
